FAERS Safety Report 8832454 (Version 1)
Quarter: 2012Q4

REPORT INFORMATION
  Report Type: Spontaneous
  Country: US (occurrence: None)
  Receive Date: 20121005
  Receipt Date: 20121005
  Transmission Date: 20130627
  Serious: Yes (Other)
  Sender: FDA-Public Use
  Company Number: None

PATIENT
  Age: 27 Year
  Sex: Female
  Weight: 52.16 kg

DRUGS (1)
  1. MIRENA [Suspect]
     Indication: IRREGULAR PERIODS
     Dates: start: 20040720, end: 20041005

REACTIONS (6)
  - Procedural pain [None]
  - Uterine perforation [None]
  - Device dislocation [None]
  - Pain [None]
  - Scar [None]
  - Neuralgia [None]
